FAERS Safety Report 6524857-3 (Version None)
Quarter: 2010Q1

REPORT INFORMATION
  Report Type: 
  Country: None (occurrence: None)
  Receive Date: 20100104
  Receipt Date: 20091222
  Transmission Date: 20100710
  Serious: Yes (Hospitalization)
  Sender: FDA-Public Use
  Company Number: PHHY2009JP58782

PATIENT
  Age: 58 Year
  Sex: Male

DRUGS (4)
  1. DIOVAN [Suspect]
     Indication: HYPERTENSION
     Route: 048
  2. SLOW-K [Suspect]
     Route: 048
  3. AMLODIPINE BESYLATE [Concomitant]
     Route: 048
  4. SPIRONOLACTONE [Concomitant]
     Dosage: UNK
     Route: 048

REACTIONS (1)
  - PRIMARY HYPERALDOSTERONISM [None]
